FAERS Safety Report 16161955 (Version 2)
Quarter: 2019Q4

REPORT INFORMATION
  Report Type: Spontaneous
  Country: GB (occurrence: GB)
  Receive Date: 20190405
  Receipt Date: 20191123
  Transmission Date: 20200122
  Serious: Yes (Other)
  Sender: FDA-Public Use
  Company Number: GB-ACCORD-117970

PATIENT
  Age: 76 Year
  Sex: Male
  Weight: 68 kg

DRUGS (11)
  1. AMLODIPINE [Concomitant]
     Active Substance: AMLODIPINE BESYLATE
     Dates: start: 20180504
  2. FINASTERIDE. [Concomitant]
     Active Substance: FINASTERIDE
     Dates: start: 20181218
  3. CODEINE PHOSPHATE/PARACETAMOL [Concomitant]
     Active Substance: ACETAMINOPHEN\CODEINE PHOSPHATE
     Dosage: TAKE 1 OR 2, 4 TIMES PER DAY.
     Dates: start: 20180215
  4. EZETIMIBE. [Concomitant]
     Active Substance: EZETIMIBE
     Dates: start: 20190208
  5. LAXIDO [Concomitant]
     Active Substance: POLYETHYLENE GLYCOL 3350\POTASSIUM CHLORIDE\SODIUM BICARBONATE\SODIUM CHLORIDE
     Dosage: TWICE DAILY
     Dates: start: 20181123, end: 20181223
  6. NITROFURANTOIN/NITROFURANTOIN SODIUM [Concomitant]
     Active Substance: NITROFURANTOIN
     Dates: start: 20181130, end: 20181205
  7. SILDENAFIL. [Concomitant]
     Active Substance: SILDENAFIL
     Dates: start: 20180215
  8. ROSUVASTATIN. [Suspect]
     Active Substance: ROSUVASTATIN
     Indication: PRODUCT USED FOR UNKNOWN INDICATION
     Dates: start: 20180321
  9. HYDROCORTISONE. [Concomitant]
     Active Substance: HYDROCORTISONE
     Dosage: POTENCY: MILD.
     Dates: start: 20190208
  10. TAMSULOSIN [Concomitant]
     Active Substance: TAMSULOSIN
     Dates: start: 20181218
  11. CLOPIDOGREL [Concomitant]
     Active Substance: CLOPIDOGREL BISULFATE
     Dates: start: 20180926

REACTIONS (1)
  - Neck pain [Recovered/Resolved]
